FAERS Safety Report 5091388-X (Version None)
Quarter: 2006Q3

REPORT INFORMATION
  Report Type: 
  Country: None (occurrence: None)
  Receive Date: 20060727
  Receipt Date: 20060616
  Transmission Date: 20061208
  Serious: Yes (Other)
  Sender: FDA-Public Use
  Company Number: 2006051754

PATIENT
  Age: 29 Year
  Sex: Male
  Weight: 87.0906 kg

DRUGS (5)
  1. LYRICA [Suspect]
     Indication: FIBROMYALGIA
     Dosage: 150 MG (75 MG,2 IN 1 D)
  2. LYRICA [Suspect]
     Indication: NEURITIS
     Dosage: 150 MG (75 MG,2 IN 1 D)
  3. FENTANYL [Suspect]
     Indication: DRUG USE FOR UNKNOWN INDICATION
     Dosage: (50 MCG)
  4. NORCO [Concomitant]
     Indication: DRUG USE FOR UNKNOWN INDICATION
  5. FLEXERIL [Concomitant]

REACTIONS (2)
  - PAIN [None]
  - SLEEP APNOEA SYNDROME [None]
